FAERS Safety Report 9704683 (Version 2)
Quarter: 2013Q4

REPORT INFORMATION
  Report Type: Spontaneous
  Country: US (occurrence: US)
  Receive Date: 20131122
  Receipt Date: 20131208
  Transmission Date: 20140711
  Serious: No
  Sender: FDA-Public Use
  Company Number: US-009507513-1311USA008768

PATIENT
  Sex: Female
  Weight: 85.27 kg

DRUGS (2)
  1. NEXPLANON [Suspect]
     Indication: CONTRACEPTION
     Dosage: UNK, 1 ROD
     Route: 059
     Dates: start: 20131022, end: 20131118
  2. TOPAMAX [Concomitant]
     Dosage: UNK

REACTIONS (4)
  - Device breakage [Recovered/Resolved]
  - Influenza like illness [Recovered/Resolved]
  - Headache [Recovered/Resolved]
  - Product quality issue [Unknown]
